FAERS Safety Report 5545306-8 (Version None)
Quarter: 2007Q4

REPORT INFORMATION
  Report Type: 
  Country: None (occurrence: None)
  Receive Date: 20071211
  Receipt Date: 20071204
  Transmission Date: 20080405
  Serious: Yes (Other)
  Sender: FDA-Public Use
  Company Number: PHEH2007US12127

PATIENT
  Sex: Female

DRUGS (3)
  1. METOPROLOL TARTRATE [Suspect]
     Dosage: 100MG UNK
  2. NORVASC [Concomitant]
     Dosage: 10MG
  3. TOPROL-XL [Suspect]

REACTIONS (2)
  - CEREBROVASCULAR ACCIDENT [None]
  - HYPERTENSION [None]
